FAERS Safety Report 6915862-3 (Version None)
Quarter: 2010Q3

REPORT INFORMATION
  Report Type: 
  Country: None (occurrence: None)
  Receive Date: 20100805
  Receipt Date: 20100727
  Transmission Date: 20110219
  Serious: Yes (Hospitalization)
  Sender: FDA-Public Use
  Company Number: ZYD-10-AE-178

PATIENT
  Age: 73 Year
  Sex: Female

DRUGS (6)
  1. METFORMIN 1000MG TABLETS (ZYDUS) [Suspect]
     Indication: TYPE 2 DIABETES MELLITUS
     Dosage: 1000MG, BID, ORAL
     Route: 048
     Dates: end: 20100629
  2. AMLODIPINE BESYLATE AND BENAZEPRIL HCL [Suspect]
     Indication: HYPERTENSION
     Dosage: 10/20MG, DAILY, ORAL
     Route: 048
     Dates: end: 20100629
  3. METOPROLOL TARTRATE [Suspect]
     Indication: HYPERTENSION
     Dosage: 50MG - DAILY - ORAL
     Route: 048
     Dates: end: 20100629
  4. PREMARIN [Suspect]
     Dosage: 0.625MG - DAILY - ORAL
     Route: 048
     Dates: end: 20100629
  5. LANTUS [Concomitant]
  6. WARFARIN [Concomitant]

REACTIONS (4)
  - ATRIAL FIBRILLATION [None]
  - MICROVASCULAR ANGINA [None]
  - MUSCLE SPASMS [None]
  - OESOPHAGEAL SPASM [None]
